FAERS Safety Report 21940535 (Version 1)
Quarter: 2023Q1

REPORT INFORMATION
  Report Type: Spontaneous
  Country: ES (occurrence: ES)
  Receive Date: 20230201
  Receipt Date: 20230201
  Transmission Date: 20230417
  Serious: No
  Sender: FDA-Public Use
  Company Number: ES-EXELIXIS-CABO-22051724

PATIENT
  Age: 63 Year
  Sex: Male

DRUGS (6)
  1. CABOMETYX [Suspect]
     Active Substance: CABOZANTINIB S-MALATE
     Indication: Clear cell renal cell carcinoma
     Dosage: 40 MG
     Dates: start: 20180726
  2. CABOMETYX [Suspect]
     Active Substance: CABOZANTINIB S-MALATE
     Dosage: 60 MG
     Dates: start: 201808
  3. DENOSUMAB [Concomitant]
     Active Substance: DENOSUMAB
     Dosage: UNK
  4. CALCIUM [Concomitant]
     Active Substance: CALCIUM
     Dosage: UNK
  5. VITAMIN D [Concomitant]
     Active Substance: VITAMIN D NOS
     Dosage: UNK
  6. CALCIUM CARBONATE\CHOLECALCIFEROL [Concomitant]
     Active Substance: CALCIUM CARBONATE\CHOLECALCIFEROL

REACTIONS (15)
  - Dermatitis allergic [Unknown]
  - Glossitis [Unknown]
  - Hypoproteinaemia [Unknown]
  - Skin hypopigmentation [Unknown]
  - Temperature intolerance [Unknown]
  - Dysgeusia [Unknown]
  - Dysphonia [Unknown]
  - Diarrhoea [Unknown]
  - Hypothyroidism [Unknown]
  - Weight decreased [Recovering/Resolving]
  - Proteinuria [Unknown]
  - Hypoalbuminaemia [Unknown]
  - Fatigue [Unknown]
  - Palmar-plantar erythrodysaesthesia syndrome [Unknown]
  - Hypertension [Unknown]
